FAERS Safety Report 9097506 (Version 1)
Quarter: 2013Q1

REPORT INFORMATION
  Report Type: Report from Study
  Country: SE (occurrence: SE)
  Receive Date: 20130212
  Receipt Date: 20130212
  Transmission Date: 20140127
  Serious: Yes (Hospitalization)
  Sender: FDA-Public Use
  Company Number: PHHO2013SE002280

PATIENT
  Sex: 0

DRUGS (4)
  1. SANDIMMUN [Suspect]
     Indication: LUNG TRANSPLANT
     Dosage: 75 MG, (6 H)
  2. IMUREL [Suspect]
     Indication: LUNG TRANSPLANT
     Dosage: 50 MG, UNK
  3. PREDNISOLONE [Concomitant]
     Indication: LUNG TRANSPLANT
     Dosage: 2.5 MG, UNK
  4. NO TREATMENT RECEIVED [Suspect]
     Indication: LUNG TRANSPLANT
     Dosage: UNK, NO TREATMENT

REACTIONS (1)
  - Bronchitis [Recovered/Resolved]
